FAERS Safety Report 6785550-5 (Version None)
Quarter: 2010Q2

REPORT INFORMATION
  Report Type: 
  Country: None (occurrence: None)
  Receive Date: 20100623
  Receipt Date: 20100611
  Transmission Date: 20101027
  Serious: Yes (Hospitalization)
  Sender: FDA-Public Use
  Company Number: US-JNJFOC-20100510579

PATIENT
  Age: 6 Year
  Sex: Female
  Weight: 18.14 kg

DRUGS (2)
  1. CHILDREN'S TYLENOL PLUS COLD [Suspect]
     Indication: NASOPHARYNGITIS
  2. CHILDREN'S TYLENOL PLUS MULTI-SYMPTOM COLD [Suspect]
     Indication: NASOPHARYNGITIS
     Route: 048

REACTIONS (2)
  - HAEMATEMESIS [None]
  - PRODUCT QUALITY ISSUE [None]
